FAERS Safety Report 13167659 (Version 1)
Quarter: 2017Q1

REPORT INFORMATION
  Report Type: Spontaneous
  Country: PT (occurrence: PT)
  Receive Date: 20170131
  Receipt Date: 20170131
  Transmission Date: 20170428
  Serious: Yes (Hospitalization, Disabling, Other)
  Sender: FDA-Public Use
  Company Number: PT-ALIMERA SCIENCES LIMITED-PT-IL-2017-003123

PATIENT

DRUGS (1)
  1. ILUVIEN [Suspect]
     Active Substance: FLUOCINOLONE ACETONIDE
     Indication: DIABETIC RETINAL OEDEMA
     Dosage: 0.25 ?G, UNK
     Route: 031
     Dates: start: 20170104

REACTIONS (7)
  - Intraocular pressure increased [Unknown]
  - Ocular hyperaemia [Unknown]
  - Endophthalmitis [Unknown]
  - Medical device removal [Recovered/Resolved]
  - Vitrectomy [Recovered/Resolved]
  - Visual acuity reduced [Unknown]
  - Eye pain [Unknown]

NARRATIVE: CASE EVENT DATE: 201701
